FAERS Safety Report 6433755-5 (Version None)
Quarter: 2009Q4

REPORT INFORMATION
  Report Type: 
  Country: None (occurrence: None)
  Receive Date: 20091110
  Receipt Date: 20091028
  Transmission Date: 20100525
  Serious: Yes (Hospitalization)
  Sender: FDA-Public Use
  Company Number: JP-ROCHE-666739

PATIENT
  Age: 50 Year
  Sex: Male

DRUGS (7)
  1. COPEGUS [Suspect]
     Indication: HEPATITIS C
     Route: 048
     Dates: start: 20070301, end: 20071101
  2. COPEGUS [Suspect]
     Route: 048
     Dates: start: 20071101
  3. INTRON A [Suspect]
     Indication: HEPATITIS C
     Dosage: DOSE: 1.5 MU, ROUTE: INJECTABLE (NOT OTHERWISE SPECIFIED)
     Route: 050
     Dates: start: 20070301, end: 20071101
  4. INTRON A [Suspect]
     Dosage: DOSE: 3 MU, ROUTE: INJECTABLE (NOT OTHERWISE SPECIFIED)
     Route: 050
     Dates: start: 20071101
  5. TACROLIMUS [Concomitant]
     Dates: end: 20071101
  6. TACROLIMUS [Concomitant]
     Dates: start: 20071101
  7. GRAN [Concomitant]
     Dosage: ROUTE: INJECTABLE (NOT OTHERWISE SPECIFIED)
     Route: 050
     Dates: start: 20071101

REACTIONS (1)
  - LYMPH NODE TUBERCULOSIS [None]
